FAERS Safety Report 6884630-3 (Version None)
Quarter: 2010Q3

REPORT INFORMATION
  Report Type: 
  Country: None (occurrence: None)
  Receive Date: 20100729
  Receipt Date: 20070716
  Transmission Date: 20110219
  Serious: No
  Sender: FDA-Public Use
  Company Number: US-PFIZER INC-2007058447

PATIENT
  Sex: Male
  Weight: 47.7 kg

DRUGS (6)
  1. CELEBREX [Suspect]
     Indication: RHEUMATOID ARTHRITIS
     Dates: start: 20070501, end: 20070713
  2. MONTELUKAST SODIUM [Concomitant]
  3. ZYRTEC [Concomitant]
  4. IBUPROFEN TABLETS [Concomitant]
  5. ALL OTHER THERAPEUTIC PRODUCTS [Concomitant]
  6. ALBUTEROL [Concomitant]

REACTIONS (1)
  - ANXIETY [None]
